FAERS Safety Report 8196925-4 (Version None)
Quarter: 2012Q1

REPORT INFORMATION
  Report Type: 
  Country: None (occurrence: None)
  Receive Date: 20120309
  Receipt Date: 20120305
  Transmission Date: 20120608
  Serious: Yes (Death, Hospitalization, Disabling)
  Sender: FDA-Public Use
  Company Number: US-CELGENEUS-163-21880-11043224

PATIENT
  Sex: Male

DRUGS (8)
  1. COUMADIN [Suspect]
     Route: 065
  2. PREDNISONE [Concomitant]
     Route: 065
  3. XANAX [Concomitant]
     Route: 065
  4. FLOMAX [Suspect]
     Route: 065
  5. REVLIMID [Suspect]
     Dosage: 5 MILLIGRAM
     Route: 048
     Dates: start: 20110801
  6. REVLIMID [Suspect]
     Indication: MYELOFIBROSIS
     Dosage: 10 MILLIGRAM
     Route: 048
     Dates: start: 20110301
  7. REVLIMID [Suspect]
     Dosage: 5 MILLIGRAM
     Route: 048
     Dates: start: 20110519, end: 20110531
  8. PAXIL [Concomitant]
     Route: 065

REACTIONS (4)
  - HAEMORRHAGE URINARY TRACT [None]
  - NAUSEA [None]
  - LUNG CANCER METASTATIC [None]
  - FULL BLOOD COUNT DECREASED [None]
